FAERS Safety Report 9618882 (Version 2)
Quarter: 2013Q4

REPORT INFORMATION
  Report Type: Report from Study
  Country: US (occurrence: US)
  Receive Date: 20131014
  Receipt Date: 20131018
  Transmission Date: 20140711
  Serious: Yes (Death, Hospitalization, Other)
  Sender: FDA-Public Use
  Company Number: US-ASTELLAS-2013US010524

PATIENT
  Age: 82 Year
  Sex: Female
  Weight: 48 kg

DRUGS (18)
  1. ERLOTINIB TABLET [Suspect]
     Indication: ACUTE MYELOID LEUKAEMIA
     Dosage: 150 MG, UID/QD
     Route: 048
     Dates: start: 20130820
  2. NORCO [Concomitant]
     Indication: PAIN
     Dosage: 1 DF, PRN
     Route: 048
  3. SENOKOT-S [Concomitant]
     Indication: CONSTIPATION
     Dosage: 2 DF, Q12H, PRN
     Route: 048
  4. ULTRAM [Concomitant]
     Indication: PAIN
     Dosage: 50 MG, PRN
     Route: 048
  5. NORVASC [Concomitant]
     Indication: BLOOD PRESSURE
     Dosage: 5 MG, UID/QD
     Route: 048
  6. ARTIFICIAL TEARS                   /00445101/ [Concomitant]
     Indication: DRY EYE
     Dosage: 1 DROP, IN BOTH EYES, Q2H
     Route: 047
  7. VANTIN                             /01043502/ [Concomitant]
     Indication: ANTIBIOTIC THERAPY
     Dosage: 200 MG, UID/QD
     Route: 048
  8. CIPROFLOXACIN [Concomitant]
     Indication: PRODUCT USED FOR UNKNOWN INDICATION
     Dosage: 500 MG, BID
     Route: 048
  9. HEPARIN LOCK FLUSH [Concomitant]
     Indication: PRODUCT USED FOR UNKNOWN INDICATION
     Dosage: 2 ML, UID/QD
     Route: 042
  10. LACRILUBE [Concomitant]
     Indication: DRY EYE
     Dosage: 1/4 INCH RIBBON BOTH BOTTOM LIDS EYES AT BED
     Route: 047
  11. LISINOPRIL [Concomitant]
     Indication: BLOOD PRESSURE
     Dosage: 10 MG, BID
     Route: 048
  12. MAGNESIUM OXIDE [Concomitant]
     Indication: MINERAL SUPPLEMENTATION
     Dosage: 500 MG, BID
     Route: 048
  13. ONDANSETRON [Concomitant]
     Indication: NAUSEA
     Dosage: 8 MG, PRN
     Route: 048
  14. ONDANSETRON [Concomitant]
     Indication: VOMITING
  15. PANTOPRAZOLE [Concomitant]
     Indication: GASTROOESOPHAGEAL REFLUX DISEASE
     Dosage: 40 MG, UID/QD
     Route: 048
  16. SYNTHROID [Concomitant]
     Indication: THYROID THERAPY
     Dosage: 50 UG, UID/QD
     Route: 048
  17. VALTREX [Concomitant]
     Indication: ANTIVIRAL PROPHYLAXIS
     Dosage: 500 MG, UID/QD
     Route: 048
  18. VFEND [Concomitant]
     Indication: ANTIFUNGAL PROPHYLAXIS
     Dosage: 200 MG, BID
     Route: 048

REACTIONS (11)
  - Off label use [Unknown]
  - Thrombocytopenia [Unknown]
  - Renal failure [Unknown]
  - Acute myeloid leukaemia [Unknown]
  - Arthralgia [Unknown]
  - Pleural effusion [Unknown]
  - Hypotension [Unknown]
  - Myalgia [None]
  - Decreased appetite [Unknown]
  - Multi-organ failure [Fatal]
  - Urinary tract infection [Unknown]
